FAERS Safety Report 8957543 (Version 1)
Quarter: 2012Q4

REPORT INFORMATION
  Report Type: 
  Country: US (occurrence: US)
  Receive Date: 20121210
  Receipt Date: 20121210
  Transmission Date: 20130627
  Serious: Yes (Disabling, Other)
  Sender: FDA-Public Use
  Company Number: US-ROCHE-1164435

PATIENT
  Age: 30 Year
  Sex: Male

DRUGS (4)
  1. LUCENTIS [Suspect]
     Indication: DIABETIC RETINOPATHY
     Route: 050
     Dates: start: 20111207, end: 20111215
  2. HUMALOG [Concomitant]
     Indication: DIABETES MELLITUS
     Route: 058
  3. METHADONE [Concomitant]
     Route: 048
  4. GOODY POWDER NOS [Concomitant]
     Indication: HEADACHE
     Route: 048

REACTIONS (2)
  - Retinal artery occlusion [Recovered/Resolved]
  - Blindness [Unknown]
